FAERS Safety Report 8583663-9 (Version None)
Quarter: 2012Q3

REPORT INFORMATION
  Report Type: 
  Country: None (occurrence: None)
  Receive Date: 20120809
  Receipt Date: 20120705
  Transmission Date: 20120928
  Serious: Yes (Hospitalization, Other)
  Sender: FDA-Public Use
  Company Number: JP-MSD-2012SP014481

PATIENT

DRUGS (11)
  1. MYSER (DIFLUPREDNATE) [Concomitant]
     Dosage: UNK UNK, UNKNOWN
     Route: 061
     Dates: start: 20120221
  2. ALLEGRA [Concomitant]
     Dosage: UPDATE (14MAY2012)
     Route: 048
     Dates: start: 20120309
  3. REBETOL [Suspect]
     Dosage: 400 MG, QD
     Route: 048
     Dates: start: 20120207, end: 20120213
  4. REBETOL [Suspect]
     Dosage: 200 MG, QD
     Route: 048
     Dates: start: 20120214, end: 20120228
  5. REBETOL [Suspect]
     Dosage: 800 MG, QD
     Route: 048
     Dates: start: 20120117, end: 20120206
  6. TELAPREVIR [Concomitant]
     Indication: HEPATITIS C
     Dosage: 2250 MG, QD
     Route: 048
     Dates: start: 20120117, end: 20120228
  7. TALION (BEPOTASTINE BESYLATE) [Concomitant]
     Dosage: UPDATE (06APR2012): FORMULATION: POR AND INDICATION.
     Route: 048
     Dates: start: 20120221, end: 20120228
  8. XYZAL [Concomitant]
     Dosage: UPDATE (06APR2012):FORMULATION: POR, FREQUENCY AND INDICATION
     Route: 048
     Dates: start: 20120228
  9. PEGINTERFERON ALFA-2B [Suspect]
     Indication: HEPATITIS C
     Dosage: 1.5 ?G/KG, QW
     Route: 058
     Dates: start: 20120117, end: 20120221
  10. ALLOPURINOL [Suspect]
     Dosage: 100 MG, QD
     Route: 048
     Dates: end: 20120306
  11. MAGMITT [Concomitant]
     Indication: CONSTIPATION
     Dosage: UPDATE (06APR2012): FORMULATION: POR, FREQUENCY.
     Route: 048
     Dates: start: 20120214

REACTIONS (5)
  - PYREXIA [None]
  - DRUG RASH WITH EOSINOPHILIA AND SYSTEMIC SYMPTOMS [None]
  - ANAEMIA [None]
  - RASH [None]
  - STOMATITIS [None]
